FAERS Safety Report 5785251-6 (Version None)
Quarter: 2008Q2

REPORT INFORMATION
  Report Type: 
  Country: None (occurrence: None)
  Receive Date: 20080605
  Receipt Date: 20080501
  Transmission Date: 20081010
  Serious: No
  Sender: FDA-Public Use
  Company Number: A0724452A

PATIENT

DRUGS (4)
  1. ALLI [Suspect]
     Dates: start: 20080305, end: 20080418
  2. BIOTIN [Concomitant]
  3. VITAMIN A [Concomitant]
  4. MULTI-VITAMIN [Concomitant]

REACTIONS (1)
  - ALOPECIA [None]
